FAERS Safety Report 22138381 (Version 1)
Quarter: 2023Q1

REPORT INFORMATION
  Report Type: Spontaneous
  Country: PL (occurrence: PL)
  Receive Date: 20230326
  Receipt Date: 20230326
  Transmission Date: 20230417
  Serious: Yes (Other)
  Sender: FDA-Public Use
  Company Number: PL-TEVA-2023-PL-2868969

PATIENT
  Age: 30 Year
  Sex: Male

DRUGS (2)
  1. ZOLPIDEM [Suspect]
     Active Substance: ZOLPIDEM TARTRATE
     Indication: Product used for unknown indication
     Route: 065
     Dates: start: 202210
  2. BISOPROLOL [Concomitant]
     Active Substance: BISOPROLOL
     Indication: Product used for unknown indication
     Dosage: 1.25 MG
     Route: 065

REACTIONS (7)
  - Locked-in syndrome [Unknown]
  - Intentional product use issue [Unknown]
  - Depressive symptom [Not Recovered/Not Resolved]
  - Discouragement [Unknown]
  - Somnolence [Unknown]
  - Withdrawal syndrome [Unknown]
  - Irritability [Unknown]
